FAERS Safety Report 26203930 (Version 1)
Quarter: 2025Q4

REPORT INFORMATION
  Report Type: Spontaneous
  Country: CA (occurrence: CA)
  Receive Date: 20251226
  Receipt Date: 20251226
  Transmission Date: 20260118
  Serious: Yes (Death, Other)
  Sender: BRISTOL-MYERS SQUIBB COMPANY
  Company Number: CA-BRISTOL-MYERS SQUIBB COMPANY-2025-172491

PATIENT
  Age: 43 Year
  Sex: Female
  Weight: 96 kg

DRUGS (265)
  1. ORENCIA [Suspect]
     Active Substance: ABATACEPT
     Indication: Rheumatoid arthritis
  2. ORENCIA [Suspect]
     Active Substance: ABATACEPT
  3. ORENCIA [Suspect]
     Active Substance: ABATACEPT
     Indication: Rheumatoid arthritis
     Route: 040
  4. TRIAMCINOLONE ACETONIDE [Suspect]
     Active Substance: TRIAMCINOLONE ACETONIDE
     Indication: Product used for unknown indication
  5. TRIAMCINOLONE ACETONIDE [Suspect]
     Active Substance: TRIAMCINOLONE ACETONIDE
  6. ACETAMINOPHEN [Concomitant]
     Active Substance: ACETAMINOPHEN
     Indication: Product used for unknown indication
  7. ACETAMINOPHEN AND CODEINE [Concomitant]
     Active Substance: ACETAMINOPHEN\CODEINE PHOSPHATE
     Indication: Rheumatoid arthritis
  8. ACETAMINOPHEN AND CODEINE [Concomitant]
     Active Substance: ACETAMINOPHEN\CODEINE PHOSPHATE
  9. ACTEMRA [Concomitant]
     Active Substance: TOCILIZUMAB
     Indication: Rheumatoid arthritis
     Route: 058
  10. ACTEMRA [Concomitant]
     Active Substance: TOCILIZUMAB
  11. ACTEMRA [Concomitant]
     Active Substance: TOCILIZUMAB
  12. ACTEMRA [Concomitant]
     Active Substance: TOCILIZUMAB
  13. ACTEMRA [Concomitant]
     Active Substance: TOCILIZUMAB
  14. ACTEMRA [Concomitant]
     Active Substance: TOCILIZUMAB
  15. ACTEMRA [Concomitant]
     Active Substance: TOCILIZUMAB
  16. ACTEMRA [Concomitant]
     Active Substance: TOCILIZUMAB
  17. ACTEMRA [Concomitant]
     Active Substance: TOCILIZUMAB
  18. ACTEMRA [Concomitant]
     Active Substance: TOCILIZUMAB
  19. ACTEMRA [Concomitant]
     Active Substance: TOCILIZUMAB
  20. ACTEMRA [Concomitant]
     Active Substance: TOCILIZUMAB
  21. ACTEMRA [Concomitant]
     Active Substance: TOCILIZUMAB
  22. ACTEMRA [Concomitant]
     Active Substance: TOCILIZUMAB
  23. AIMOVIG [Concomitant]
     Active Substance: ERENUMAB-AOOE
     Indication: Rheumatoid arthritis
  24. AIMOVIG [Concomitant]
     Active Substance: ERENUMAB-AOOE
     Indication: Migraine
  25. AZATHIOPRINE [Concomitant]
     Active Substance: AZATHIOPRINE
     Indication: Product used for unknown indication
  26. CANDESARTAN [Concomitant]
     Active Substance: CANDESARTAN
     Indication: Rheumatoid arthritis
     Route: 048
  27. CANDESARTAN [Concomitant]
     Active Substance: CANDESARTAN
     Indication: Migraine
  28. CELECOXIB [Concomitant]
     Active Substance: CELECOXIB
     Indication: Product used for unknown indication
  29. CELECOXIB [Concomitant]
     Active Substance: CELECOXIB
  30. CELECOXIB [Concomitant]
     Active Substance: CELECOXIB
  31. CELECOXIB [Concomitant]
     Active Substance: CELECOXIB
  32. CELECOXIB [Concomitant]
     Active Substance: CELECOXIB
  33. CELECOXIB [Concomitant]
     Active Substance: CELECOXIB
  34. CELECOXIB [Concomitant]
     Active Substance: CELECOXIB
  35. CETIRIZINE [Concomitant]
     Active Substance: CETIRIZINE HYDROCHLORIDE
     Indication: Rheumatoid arthritis
     Route: 048
  36. CETIRIZINE [Concomitant]
     Active Substance: CETIRIZINE HYDROCHLORIDE
  37. CETIRIZINE [Concomitant]
     Active Substance: CETIRIZINE HYDROCHLORIDE
     Route: 048
  38. CETIRIZINE [Concomitant]
     Active Substance: CETIRIZINE HYDROCHLORIDE
     Route: 048
  39. CETIRIZINE [Concomitant]
     Active Substance: CETIRIZINE HYDROCHLORIDE
     Route: 048
  40. CETIRIZINE [Concomitant]
     Active Substance: CETIRIZINE HYDROCHLORIDE
  41. CETIRIZINE [Concomitant]
     Active Substance: CETIRIZINE HYDROCHLORIDE
  42. CETIRIZINE [Concomitant]
     Active Substance: CETIRIZINE HYDROCHLORIDE
     Route: 048
  43. CETIRIZINE [Concomitant]
     Active Substance: CETIRIZINE HYDROCHLORIDE
  44. CETIRIZINE [Concomitant]
     Active Substance: CETIRIZINE HYDROCHLORIDE
     Route: 048
  45. CETIRIZINE [Concomitant]
     Active Substance: CETIRIZINE HYDROCHLORIDE
     Route: 048
  46. CETIRIZINE [Concomitant]
     Active Substance: CETIRIZINE HYDROCHLORIDE
     Route: 048
  47. CETIRIZINE [Concomitant]
     Active Substance: CETIRIZINE HYDROCHLORIDE
  48. CETIRIZINE [Concomitant]
     Active Substance: CETIRIZINE HYDROCHLORIDE
  49. DESOXIMETASONE [Concomitant]
     Active Substance: DESOXIMETASONE
     Indication: Rheumatoid arthritis
  50. DESOXIMETASONE [Concomitant]
     Active Substance: DESOXIMETASONE
     Route: 048
  51. DESOXIMETASONE [Concomitant]
     Active Substance: DESOXIMETASONE
  52. DESOXIMETASONE [Concomitant]
     Active Substance: DESOXIMETASONE
  53. DESOXIMETASONE [Concomitant]
     Active Substance: DESOXIMETASONE
     Route: 058
  54. DICLOFENAC DIETHYLAMINE [Concomitant]
     Active Substance: DICLOFENAC DIETHYLAMINE
     Indication: Product used for unknown indication
  55. DOMPERIDONE ACETATE [Concomitant]
     Active Substance: DOMPERIDONE ACETATE
     Indication: Product used for unknown indication
  56. DOMPERIDONE ACETATE [Concomitant]
     Active Substance: DOMPERIDONE ACETATE
  57. ERELZI [Concomitant]
     Active Substance: ETANERCEPT-SZZS
     Indication: Rheumatoid arthritis
     Route: 058
  58. ERELZI [Concomitant]
     Active Substance: ETANERCEPT-SZZS
  59. ERELZI [Concomitant]
     Active Substance: ETANERCEPT-SZZS
  60. ERELZI [Concomitant]
     Active Substance: ETANERCEPT-SZZS
  61. ERELZI [Concomitant]
     Active Substance: ETANERCEPT-SZZS
     Route: 058
  62. ERELZI [Concomitant]
     Active Substance: ETANERCEPT-SZZS
  63. VITAMIN D2 [Concomitant]
     Active Substance: ERGOCALCIFEROL
     Indication: Product used for unknown indication
  64. VITAMIN D2 [Concomitant]
     Active Substance: ERGOCALCIFEROL
  65. FINACEA [Concomitant]
     Active Substance: AZELAIC ACID
     Indication: Product used for unknown indication
  66. FINACEA [Concomitant]
     Active Substance: AZELAIC ACID
  67. FLUMETHASONE PIVALATE [Concomitant]
     Active Substance: FLUMETHASONE PIVALATE
     Indication: Product used for unknown indication
     Route: 058
  68. FLUMETHASONE PIVALATE [Concomitant]
     Active Substance: FLUMETHASONE PIVALATE
  69. FLUMETHASONE PIVALATE [Concomitant]
     Active Substance: FLUMETHASONE PIVALATE
     Route: 048
  70. FLUMETHASONE PIVALATE [Concomitant]
     Active Substance: FLUMETHASONE PIVALATE
     Route: 058
  71. FLUTICASONE PROPIONATE [Concomitant]
     Active Substance: FLUTICASONE PROPIONATE
     Indication: Product used for unknown indication
  72. FOLIC ACID [Concomitant]
     Active Substance: FOLIC ACID
     Indication: Rheumatoid arthritis
  73. FOLIC ACID [Concomitant]
     Active Substance: FOLIC ACID
  74. FOLIC ACID [Concomitant]
     Active Substance: FOLIC ACID
  75. FOLIC ACID [Concomitant]
     Active Substance: FOLIC ACID
  76. FOLIC ACID [Concomitant]
     Active Substance: FOLIC ACID
  77. FOLIC ACID [Concomitant]
     Active Substance: FOLIC ACID
  78. FOLIC ACID [Concomitant]
     Active Substance: FOLIC ACID
  79. FOLIC ACID [Concomitant]
     Active Substance: FOLIC ACID
  80. FOSAMAX [Concomitant]
     Active Substance: ALENDRONATE SODIUM
     Indication: Rheumatoid arthritis
  81. FOSAMAX [Concomitant]
     Active Substance: ALENDRONATE SODIUM
  82. GOLD SODIUM THIOMALATE [Concomitant]
     Active Substance: GOLD SODIUM THIOMALATE
     Indication: Product used for unknown indication
     Route: 030
  83. GOLD SODIUM THIOMALATE [Concomitant]
     Active Substance: GOLD SODIUM THIOMALATE
  84. HYDROMORPHONE [Concomitant]
     Active Substance: HYDROMORPHONE
     Indication: Rheumatoid arthritis
  85. HYDROMORPHONE [Concomitant]
     Active Substance: HYDROMORPHONE
  86. HYDROXYCHLOROQUINE [Concomitant]
     Active Substance: HYDROXYCHLOROQUINE
     Indication: Rheumatoid arthritis
     Route: 048
  87. HYDROXYCHLOROQUINE [Concomitant]
     Active Substance: HYDROXYCHLOROQUINE
  88. HYDROXYCHLOROQUINE [Concomitant]
     Active Substance: HYDROXYCHLOROQUINE
  89. HYDROXYCHLOROQUINE [Concomitant]
     Active Substance: HYDROXYCHLOROQUINE
     Route: 048
  90. HYDROXYCHLOROQUINE [Concomitant]
     Active Substance: HYDROXYCHLOROQUINE
  91. HYDROXYCHLOROQUINE [Concomitant]
     Active Substance: HYDROXYCHLOROQUINE
  92. HYDROXYCHLOROQUINE [Concomitant]
     Active Substance: HYDROXYCHLOROQUINE
  93. HYRIMOZ [Concomitant]
     Active Substance: ADALIMUMAB-ADAZ
     Indication: Rheumatoid arthritis
     Route: 058
  94. HYRIMOZ [Concomitant]
     Active Substance: ADALIMUMAB-ADAZ
     Indication: Migraine
  95. HYRIMOZ [Concomitant]
     Active Substance: ADALIMUMAB-ADAZ
  96. HYRIMOZ [Concomitant]
     Active Substance: ADALIMUMAB-ADAZ
  97. HYRIMOZ [Concomitant]
     Active Substance: ADALIMUMAB-ADAZ
  98. HYRIMOZ [Concomitant]
     Active Substance: ADALIMUMAB-ADAZ
  99. HYRIMOZ [Concomitant]
     Active Substance: ADALIMUMAB-ADAZ
  100. HYRIMOZ [Concomitant]
     Active Substance: ADALIMUMAB-ADAZ
  101. HYRIMOZ [Concomitant]
     Active Substance: ADALIMUMAB-ADAZ
  102. HYRIMOZ [Concomitant]
     Active Substance: ADALIMUMAB-ADAZ
  103. INFLIXIMAB [Concomitant]
     Active Substance: INFLIXIMAB
     Indication: Rheumatoid arthritis
     Route: 040
  104. INFLIXIMAB [Concomitant]
     Active Substance: INFLIXIMAB
     Route: 040
  105. INFLIXIMAB [Concomitant]
     Active Substance: INFLIXIMAB
  106. KEVZARA [Concomitant]
     Active Substance: SARILUMAB
     Indication: Rheumatoid arthritis
  107. KEVZARA [Concomitant]
     Active Substance: SARILUMAB
  108. LAMOTRIGINE [Concomitant]
     Active Substance: LAMOTRIGINE
     Indication: Product used for unknown indication
  109. LAMOTRIGINE [Concomitant]
     Active Substance: LAMOTRIGINE
     Route: 048
  110. LAMOTRIGINE [Concomitant]
     Active Substance: LAMOTRIGINE
  111. LAMOTRIGINE [Concomitant]
     Active Substance: LAMOTRIGINE
     Route: 048
  112. LAMOTRIGINE [Concomitant]
     Active Substance: LAMOTRIGINE
  113. LAMOTRIGINE [Concomitant]
     Active Substance: LAMOTRIGINE
     Route: 048
  114. LAMOTRIGINE [Concomitant]
     Active Substance: LAMOTRIGINE
  115. LAMOTRIGINE [Concomitant]
     Active Substance: LAMOTRIGINE
     Route: 048
  116. LAMOTRIGINE [Concomitant]
     Active Substance: LAMOTRIGINE
  117. LAMOTRIGINE [Concomitant]
     Active Substance: LAMOTRIGINE
     Route: 048
  118. LAMOTRIGINE [Concomitant]
     Active Substance: LAMOTRIGINE
  119. LAMOTRIGINE [Concomitant]
     Active Substance: LAMOTRIGINE
     Route: 048
  120. LAMOTRIGINE [Concomitant]
     Active Substance: LAMOTRIGINE
  121. LAMOTRIGINE [Concomitant]
     Active Substance: LAMOTRIGINE
  122. LEVOMILNACIPRAN [Concomitant]
     Active Substance: LEVOMILNACIPRAN
     Indication: Product used for unknown indication
  123. LEVOMILNACIPRAN [Concomitant]
     Active Substance: LEVOMILNACIPRAN
  124. MAGNESIUM [Concomitant]
     Active Substance: MAGNESIUM
     Indication: Product used for unknown indication
  125. MAGNESIUM [Concomitant]
     Active Substance: MAGNESIUM
  126. METHOTREXATE [Concomitant]
     Active Substance: METHOTREXATE
     Indication: Product used for unknown indication
     Route: 048
  127. METHOTREXATE [Concomitant]
     Active Substance: METHOTREXATE
  128. METHOTREXATE [Concomitant]
     Active Substance: METHOTREXATE
  129. METHOTREXATE [Concomitant]
     Active Substance: METHOTREXATE
     Route: 048
  130. METHOTREXATE [Concomitant]
     Active Substance: METHOTREXATE
  131. METHOTREXATE [Concomitant]
     Active Substance: METHOTREXATE
  132. METHOTREXATE [Concomitant]
     Active Substance: METHOTREXATE
     Route: 048
  133. METHOTREXATE [Concomitant]
     Active Substance: METHOTREXATE
  134. METHOTREXATE [Concomitant]
     Active Substance: METHOTREXATE
  135. METHOTREXATE [Concomitant]
     Active Substance: METHOTREXATE
     Route: 048
  136. METHYLPREDNISOLONE ACETATE [Concomitant]
     Active Substance: METHYLPREDNISOLONE ACETATE
     Indication: Product used for unknown indication
  137. METHYLPREDNISOLONE ACETATE [Concomitant]
     Active Substance: METHYLPREDNISOLONE ACETATE
  138. MINOCYCLINE HYDROCHLORIDE [Concomitant]
     Active Substance: MINOCYCLINE HYDROCHLORIDE
     Indication: Product used for unknown indication
  139. MINOCYCLINE HYDROCHLORIDE [Concomitant]
     Active Substance: MINOCYCLINE HYDROCHLORIDE
  140. MYRBETRIQ [Concomitant]
     Active Substance: MIRABEGRON
     Indication: Product used for unknown indication
     Route: 048
  141. MYRBETRIQ [Concomitant]
     Active Substance: MIRABEGRON
  142. MYRBETRIQ [Concomitant]
     Active Substance: MIRABEGRON
  143. MYRBETRIQ [Concomitant]
     Active Substance: MIRABEGRON
  144. MYRBETRIQ [Concomitant]
     Active Substance: MIRABEGRON
  145. MYRBETRIQ [Concomitant]
     Active Substance: MIRABEGRON
  146. MYRBETRIQ [Concomitant]
     Active Substance: MIRABEGRON
  147. MYRBETRIQ [Concomitant]
     Active Substance: MIRABEGRON
  148. NAPROXEN [Concomitant]
     Active Substance: NAPROXEN
     Indication: Rheumatoid arthritis
  149. NAPROXEN [Concomitant]
     Active Substance: NAPROXEN
  150. NUCALA [Concomitant]
     Active Substance: MEPOLIZUMAB
     Indication: Product used for unknown indication
  151. OTEZLA [Concomitant]
     Active Substance: APREMILAST
     Indication: Product used for unknown indication
  152. OTEZLA [Concomitant]
     Active Substance: APREMILAST
  153. OTEZLA [Concomitant]
     Active Substance: APREMILAST
  154. OXYCODONE [Concomitant]
     Active Substance: OXYCODONE
     Indication: Product used for unknown indication
  155. PHENYLEPHRINE HYDROCHLORIDE [Concomitant]
     Active Substance: PHENYLEPHRINE HYDROCHLORIDE
     Indication: Rheumatoid arthritis
  156. PHENYLEPHRINE HYDROCHLORIDE [Concomitant]
     Active Substance: PHENYLEPHRINE HYDROCHLORIDE
     Route: 030
  157. PHOSPHORUS [Concomitant]
     Active Substance: PHOSPHORUS
     Indication: Rheumatoid arthritis
  158. PHOSPHORUS [Concomitant]
     Active Substance: PHOSPHORUS
  159. PHTHALYLSULFATHIAZOLE [Concomitant]
     Active Substance: PHTHALYLSULFATHIAZOLE
     Indication: Rheumatoid arthritis
  160. PHTHALYLSULFATHIAZOLE [Concomitant]
     Active Substance: PHTHALYLSULFATHIAZOLE
     Route: 048
  161. PHTHALYLSULFATHIAZOLE [Concomitant]
     Active Substance: PHTHALYLSULFATHIAZOLE
  162. PHTHALYLSULFATHIAZOLE [Concomitant]
     Active Substance: PHTHALYLSULFATHIAZOLE
     Route: 048
  163. PHTHALYLSULFATHIAZOLE [Concomitant]
     Active Substance: PHTHALYLSULFATHIAZOLE
  164. PHTHALYLSULFATHIAZOLE [Concomitant]
     Active Substance: PHTHALYLSULFATHIAZOLE
  165. PREDNISONE [Concomitant]
     Active Substance: PREDNISONE
     Indication: Rheumatoid arthritis
  166. PREDNISONE [Concomitant]
     Active Substance: PREDNISONE
  167. PREDNISONE [Concomitant]
     Active Substance: PREDNISONE
  168. PREDNISONE [Concomitant]
     Active Substance: PREDNISONE
     Route: 048
  169. PREDNISONE [Concomitant]
     Active Substance: PREDNISONE
  170. PREDNISONE [Concomitant]
     Active Substance: PREDNISONE
  171. PSEUDOEPHEDRINE HYDROCHLORIDE [Concomitant]
     Active Substance: PSEUDOEPHEDRINE HYDROCHLORIDE
     Indication: Rheumatoid arthritis
     Route: 048
  172. PSEUDOEPHEDRINE HYDROCHLORIDE [Concomitant]
     Active Substance: PSEUDOEPHEDRINE HYDROCHLORIDE
  173. PSEUDOEPHEDRINE HYDROCHLORIDE [Concomitant]
     Active Substance: PSEUDOEPHEDRINE HYDROCHLORIDE
  174. PSEUDOEPHEDRINE HYDROCHLORIDE [Concomitant]
     Active Substance: PSEUDOEPHEDRINE HYDROCHLORIDE
  175. PSEUDOEPHEDRINE HYDROCHLORIDE [Concomitant]
     Active Substance: PSEUDOEPHEDRINE HYDROCHLORIDE
  176. PSEUDOEPHEDRINE HYDROCHLORIDE [Concomitant]
     Active Substance: PSEUDOEPHEDRINE HYDROCHLORIDE
  177. RAMIPRIL [Concomitant]
     Active Substance: RAMIPRIL
     Indication: Rheumatoid arthritis
     Route: 016
  178. RAMIPRIL [Concomitant]
     Active Substance: RAMIPRIL
     Route: 040
  179. RAMIPRIL [Concomitant]
     Active Substance: RAMIPRIL
  180. RAMIPRIL [Concomitant]
     Active Substance: RAMIPRIL
  181. RANITIDINE HYDROCHLORIDE [Concomitant]
     Active Substance: RANITIDINE HYDROCHLORIDE
     Indication: Rheumatoid arthritis
     Route: 058
  182. RANITIDINE HYDROCHLORIDE [Concomitant]
     Active Substance: RANITIDINE HYDROCHLORIDE
     Route: 040
  183. RANITIDINE HYDROCHLORIDE [Concomitant]
     Active Substance: RANITIDINE HYDROCHLORIDE
  184. RANITIDINE HYDROCHLORIDE [Concomitant]
     Active Substance: RANITIDINE HYDROCHLORIDE
  185. RANITIDINE HYDROCHLORIDE [Concomitant]
     Active Substance: RANITIDINE HYDROCHLORIDE
  186. RANITIDINE HYDROCHLORIDE [Concomitant]
     Active Substance: RANITIDINE HYDROCHLORIDE
  187. RANITIDINE HYDROCHLORIDE [Concomitant]
     Active Substance: RANITIDINE HYDROCHLORIDE
  188. RANITIDINE HYDROCHLORIDE [Concomitant]
     Active Substance: RANITIDINE HYDROCHLORIDE
  189. RITUXIMAB [Concomitant]
     Active Substance: RITUXIMAB
     Indication: Rheumatoid arthritis
     Route: 043
  190. RITUXIMAB [Concomitant]
     Active Substance: RITUXIMAB
     Route: 058
  191. RITUXIMAB [Concomitant]
     Active Substance: RITUXIMAB
  192. RITUXIMAB [Concomitant]
     Active Substance: RITUXIMAB
     Route: 040
  193. RITUXIMAB [Concomitant]
     Active Substance: RITUXIMAB
     Route: 040
  194. LEFLUNOMIDE [Concomitant]
     Active Substance: LEFLUNOMIDE
     Indication: Rheumatoid arthritis
  195. LEFLUNOMIDE [Concomitant]
     Active Substance: LEFLUNOMIDE
     Route: 048
  196. LEFLUNOMIDE [Concomitant]
     Active Substance: LEFLUNOMIDE
     Route: 048
  197. LEFLUNOMIDE [Concomitant]
     Active Substance: LEFLUNOMIDE
  198. LEFLUNOMIDE [Concomitant]
     Active Substance: LEFLUNOMIDE
     Route: 048
  199. LEFLUNOMIDE [Concomitant]
     Active Substance: LEFLUNOMIDE
  200. LEFLUNOMIDE [Concomitant]
     Active Substance: LEFLUNOMIDE
     Route: 048
  201. LEFLUNOMIDE [Concomitant]
     Active Substance: LEFLUNOMIDE
     Route: 048
  202. LEFLUNOMIDE [Concomitant]
     Active Substance: LEFLUNOMIDE
     Route: 048
  203. LEFLUNOMIDE [Concomitant]
     Active Substance: LEFLUNOMIDE
  204. SIMPONI [Concomitant]
     Active Substance: GOLIMUMAB
     Indication: Rheumatoid arthritis
  205. SIMPONI [Concomitant]
     Active Substance: GOLIMUMAB
     Route: 058
  206. SULFASALAZINE [Concomitant]
     Active Substance: SULFASALAZINE
     Indication: Rheumatoid arthritis
  207. SULFASALAZINE [Concomitant]
     Active Substance: SULFASALAZINE
  208. SULFASALAZINE [Concomitant]
     Active Substance: SULFASALAZINE
  209. SULFASALAZINE [Concomitant]
     Active Substance: SULFASALAZINE
     Route: 048
  210. SULFASALAZINE [Concomitant]
     Active Substance: SULFASALAZINE
  211. SULFASALAZINE [Concomitant]
     Active Substance: SULFASALAZINE
  212. SULFASALAZINE [Concomitant]
     Active Substance: SULFASALAZINE
  213. SULFASALAZINE [Concomitant]
     Active Substance: SULFASALAZINE
  214. SULFASALAZINE [Concomitant]
     Active Substance: SULFASALAZINE
  215. SULFASALAZINE [Concomitant]
     Active Substance: SULFASALAZINE
  216. SULFASALAZINE [Concomitant]
     Active Substance: SULFASALAZINE
  217. SULFASALAZINE [Concomitant]
     Active Substance: SULFASALAZINE
     Route: 048
  218. SULFASALAZINE [Concomitant]
     Active Substance: SULFASALAZINE
  219. SULFASALAZINE [Concomitant]
     Active Substance: SULFASALAZINE
  220. SULFASALAZINE [Concomitant]
     Active Substance: SULFASALAZINE
     Route: 048
  221. SULFASALAZINE [Concomitant]
     Active Substance: SULFASALAZINE
     Route: 048
  222. SULFASALAZINE [Concomitant]
     Active Substance: SULFASALAZINE
  223. SULFASALAZINE [Concomitant]
     Active Substance: SULFASALAZINE
     Route: 058
  224. SULFASALAZINE [Concomitant]
     Active Substance: SULFASALAZINE
     Route: 048
  225. SULFASALAZINE [Concomitant]
     Active Substance: SULFASALAZINE
  226. SULFASALAZINE [Concomitant]
     Active Substance: SULFASALAZINE
  227. SULFASALAZINE [Concomitant]
     Active Substance: SULFASALAZINE
  228. SULFASALAZINE [Concomitant]
     Active Substance: SULFASALAZINE
     Route: 048
  229. SULFASALAZINE [Concomitant]
     Active Substance: SULFASALAZINE
  230. SULFASALAZINE [Concomitant]
     Active Substance: SULFASALAZINE
     Route: 058
  231. SULFASALAZINE [Concomitant]
     Active Substance: SULFASALAZINE
  232. SULFASALAZINE [Concomitant]
     Active Substance: SULFASALAZINE
  233. SULFASALAZINE [Concomitant]
     Active Substance: SULFASALAZINE
  234. SULFASALAZINE [Concomitant]
     Active Substance: SULFASALAZINE
  235. SULFASALAZINE [Concomitant]
     Active Substance: SULFASALAZINE
  236. SULFASALAZINE [Concomitant]
     Active Substance: SULFASALAZINE
  237. SULFASALAZINE [Concomitant]
     Active Substance: SULFASALAZINE
     Route: 048
  238. SULFASALAZINE [Concomitant]
     Active Substance: SULFASALAZINE
  239. SULFASALAZINE [Concomitant]
     Active Substance: SULFASALAZINE
  240. SULFASALAZINE [Concomitant]
     Active Substance: SULFASALAZINE
     Route: 048
  241. TOPIRAMATE [Concomitant]
     Active Substance: TOPIRAMATE
     Indication: Migraine
  242. TOPIRAMATE [Concomitant]
     Active Substance: TOPIRAMATE
  243. TOPIRAMATE [Concomitant]
     Active Substance: TOPIRAMATE
  244. TOPIRAMATE [Concomitant]
     Active Substance: TOPIRAMATE
  245. TOPIRAMATE [Concomitant]
     Active Substance: TOPIRAMATE
  246. TOPIRAMATE [Concomitant]
     Active Substance: TOPIRAMATE
  247. TOPIRAMATE [Concomitant]
     Active Substance: TOPIRAMATE
  248. TOPIRAMATE [Concomitant]
     Active Substance: TOPIRAMATE
  249. TOPIRAMATE [Concomitant]
     Active Substance: TOPIRAMATE
  250. TOPIRAMATE [Concomitant]
     Active Substance: TOPIRAMATE
  251. TOPIRAMATE [Concomitant]
     Active Substance: TOPIRAMATE
  252. TOPIRAMATE [Concomitant]
     Active Substance: TOPIRAMATE
  253. COSENTYX [Concomitant]
     Active Substance: SECUKINUMAB
     Indication: Psoriatic arthropathy
  254. TRAMADOL HCL [Concomitant]
     Active Substance: TRAMADOL HYDROCHLORIDE
     Indication: Product used for unknown indication
  255. TRAMADOL HCL [Concomitant]
     Active Substance: TRAMADOL HYDROCHLORIDE
  256. TRAZODONE [Concomitant]
     Active Substance: TRAZODONE HYDROCHLORIDE
     Indication: Product used for unknown indication
  257. TRAZODONE [Concomitant]
     Active Substance: TRAZODONE HYDROCHLORIDE
  258. TRAZODONE [Concomitant]
     Active Substance: TRAZODONE HYDROCHLORIDE
  259. TRAZODONE [Concomitant]
     Active Substance: TRAZODONE HYDROCHLORIDE
  260. TRETINOIN [Concomitant]
     Active Substance: TRETINOIN
     Indication: Product used for unknown indication
  261. VITAMIN C [Concomitant]
     Active Substance: ASCORBIC ACID
     Indication: Product used for unknown indication
  262. VITAMIN C [Concomitant]
     Active Substance: ASCORBIC ACID
  263. VITAMIN C [Concomitant]
     Active Substance: ASCORBIC ACID
  264. VITAMIN C [Concomitant]
     Active Substance: ASCORBIC ACID
  265. VITAMIN C [Concomitant]
     Active Substance: ASCORBIC ACID

REACTIONS (1)
  - Death [Fatal]
